FAERS Safety Report 8118139-6 (Version None)
Quarter: 2012Q1

REPORT INFORMATION
  Report Type: 
  Country: None (occurrence: None)
  Receive Date: 20120207
  Receipt Date: 20120130
  Transmission Date: 20120608
  Serious: Yes (Other)
  Sender: FDA-Public Use
  Company Number: CN-BRISTOL-MYERS SQUIBB COMPANY-16121360

PATIENT

DRUGS (3)
  1. ERBITUX [Suspect]
     Indication: COLORECTAL CANCER
     Dosage: 35.7143 MG/M2:STARTED WITH 400MG/M2,1 ONCE(MORE THAN 2HRS)
     Route: 041
  2. CIMETIDINE INJ [Concomitant]
     Indication: PREMEDICATION
     Dosage: BEFORE CETUXIMAB INFUSION
     Route: 042
  3. DIPHENHYDRAMINE HCL [Concomitant]
     Indication: PREMEDICATION
     Dosage: INJ,BEFORE CETUXIMAB INFUSION
     Route: 030

REACTIONS (3)
  - DIARRHOEA [None]
  - NEUTROPENIA [None]
  - BONE MARROW FAILURE [None]
